FAERS Safety Report 5214700-7 (Version None)
Quarter: 2006Q4

REPORT INFORMATION
  Report Type: 
  Country: None (occurrence: None)
  Receive Date: 20061107
  Receipt Date: 20060817
  Transmission Date: 20070319
  Serious: No
  Sender: FDA-Public Use
  Company Number: 200615144BWH

PATIENT
  Age: 44 Year
  Sex: Male
  Weight: 81.6475 kg

DRUGS (1)
  1. LEVITRA [Suspect]
     Dosage: ORAL
     Route: 048

REACTIONS (1)
  - ERECTION INCREASED [None]
